FAERS Safety Report 6438222-0 (Version None)
Quarter: 2009Q4

REPORT INFORMATION
  Report Type: 
  Country: None (occurrence: None)
  Receive Date: 20091109
  Receipt Date: 20091029
  Transmission Date: 20100525
  Serious: Yes (Hospitalization)
  Sender: FDA-Public Use
  Company Number: 2009012033

PATIENT
  Age: 71 Year
  Sex: Male
  Weight: 63 kg

DRUGS (2)
  1. TREANDA [Suspect]
     Dosage: (90 MG/M2, CYCLICAL), INTRAVENOUS
     Route: 042
     Dates: start: 20090715, end: 20090716
  2. RITUXIMAB(RITUXIMAB) [Suspect]
     Dosage: (300 MG/M2)
     Dates: start: 20090713

REACTIONS (3)
  - ANAEMIA [None]
  - DYSPNOEA [None]
  - GENERAL PHYSICAL HEALTH DETERIORATION [None]
